FAERS Safety Report 8326873-8 (Version None)
Quarter: 2012Q2

REPORT INFORMATION
  Report Type: 
  Country: None (occurrence: None)
  Receive Date: 20120501
  Receipt Date: 20120416
  Transmission Date: 20120825
  Serious: Yes (Other)
  Sender: FDA-Public Use
  Company Number: PT-ARROW GEN-2012-06807

PATIENT
  Age: 50 Year
  Sex: Female

DRUGS (2)
  1. PREDNISOLONE [Suspect]
     Indication: RHEUMATOID ARTHRITIS
     Dosage: 5-10MG/DAY
     Route: 065
  2. ALENDRONATE SODIUM [Suspect]
     Indication: BONE DENSITY ABNORMAL
     Dosage: 70MG/WEEK
     Route: 065

REACTIONS (2)
  - WRIST FRACTURE [None]
  - RIB FRACTURE [None]
